FAERS Safety Report 16535747 (Version 1)
Quarter: 2019Q3

REPORT INFORMATION
  Report Type: Spontaneous
  Country: ID (occurrence: ID)
  Receive Date: 20190705
  Receipt Date: 20190705
  Transmission Date: 20191004
  Serious: Yes (Other)
  Sender: FDA-Public Use
  Company Number: ID-ROCHE-2348696

PATIENT
  Age: 41 Year
  Sex: Female

DRUGS (4)
  1. HERCEPTIN [Suspect]
     Active Substance: TRASTUZUMAB
     Indication: BREAST CANCER
     Route: 042
     Dates: start: 201901
  2. HERCEPTIN [Suspect]
     Active Substance: TRASTUZUMAB
     Indication: BREAST CANCER
     Route: 058
  3. TAXOTERE [Concomitant]
     Active Substance: DOCETAXEL
     Indication: BREAST CANCER
     Route: 065
     Dates: start: 201901
  4. ENDOXAN [CYCLOPHOSPHAMIDE] [Concomitant]
     Active Substance: CYCLOPHOSPHAMIDE
     Indication: BREAST CANCER
     Route: 065
     Dates: start: 201901

REACTIONS (6)
  - White blood cell count decreased [Unknown]
  - Gastric disorder [Unknown]
  - Sinusitis [Not Recovered/Not Resolved]
  - Dry eye [Unknown]
  - Dry throat [Unknown]
  - Arrhythmia [Recovering/Resolving]
